FAERS Safety Report 16158021 (Version 3)
Quarter: 2020Q1

REPORT INFORMATION
  Report Type: Spontaneous
  Country: US (occurrence: US)
  Receive Date: 20190404
  Receipt Date: 20200108
  Transmission Date: 20200409
  Serious: No
  Sender: FDA-Public Use
  Company Number: US-PFIZER INC-2019142989

PATIENT
  Age: 6 Year
  Sex: Female

DRUGS (3)
  1. AVEENO [Concomitant]
     Active Substance: DIMETHICONE\HOMOSALATE\OCTINOXATE\OCTISALATE\TITANIUM DIOXIDE
     Indication: DERMATITIS ATOPIC
     Dosage: UNK
  2. EUCRISA [Suspect]
     Active Substance: CRISABOROLE
     Dosage: TWICE DAILY
     Route: 061
     Dates: start: 2018
  3. EUCRISA [Suspect]
     Active Substance: CRISABOROLE
     Indication: DERMATITIS ATOPIC
     Dosage: UNK, 1X/DAY ONCE A DAY AT NIGHT TIME
     Route: 061
     Dates: start: 2018

REACTIONS (3)
  - Condition aggravated [Unknown]
  - Application site pain [Unknown]
  - Intentional product misuse [Unknown]
